FAERS Safety Report 24236715 (Version 1)
Quarter: 2024Q3

REPORT INFORMATION
  Report Type: Spontaneous
  Country: AU (occurrence: AU)
  Receive Date: 20240822
  Receipt Date: 20240822
  Transmission Date: 20241016
  Serious: Yes (Death, Other)
  Sender: SANDOZ
  Company Number: AU-Aspen Pharma Trading Limited-AS-2017-006151

PATIENT
  Age: 35 Year
  Sex: Female

DRUGS (2)
  1. LIDOCAINE HYDROCHLORIDE [Suspect]
     Active Substance: LIDOCAINE HYDROCHLORIDE
     Indication: Anaesthesia
     Dosage: LOCAL ANAESTHETIC, LIDOCAINE, WERE INJECTED INTO CHEST DOSE UNIT: UNK
     Route: 065
     Dates: start: 201708, end: 201708
  2. TRAMADOL HYDROCHLORIDE [Suspect]
     Active Substance: TRAMADOL HYDROCHLORIDE
     Indication: Product used for unknown indication
     Route: 065
     Dates: start: 201708, end: 201708

REACTIONS (4)
  - Cardiac arrest [Fatal]
  - Overdose [Fatal]
  - Brain death [Fatal]
  - Seizure [Fatal]

NARRATIVE: CASE EVENT DATE: 20170801
